FAERS Safety Report 7703702-4 (Version None)
Quarter: 2011Q3

REPORT INFORMATION
  Report Type: 
  Country: None (occurrence: None)
  Receive Date: 20110823
  Receipt Date: 20110819
  Transmission Date: 20111222
  Serious: Yes (Hospitalization)
  Sender: FDA-Public Use
  Company Number: GB-PFIZER INC-2011193260

PATIENT
  Age: 59 Year
  Sex: Male
  Weight: 86 kg

DRUGS (4)
  1. RANITIDINE [Concomitant]
     Indication: BARRETT'S OESOPHAGUS
     Dosage: 150 MG, UNK
     Route: 048
     Dates: start: 20110505
  2. VARENICLINE TARTRATE [Suspect]
     Dosage: 0.5 MG, UNK
     Route: 048
     Dates: start: 20110715, end: 20110716
  3. VARENICLINE TARTRATE [Suspect]
     Dosage: UNK
     Dates: start: 20100501
  4. ACETAMINOPHEN AND CODEINE PHOSPHATE [Concomitant]
     Indication: PAIN
     Dosage: UNK
     Route: 048
     Dates: start: 20110721

REACTIONS (4)
  - FEELING HOT [None]
  - VOMITING [None]
  - SPEECH DISORDER [None]
  - MALAISE [None]
